FAERS Safety Report 9539440 (Version 2)
Quarter: 2013Q3

REPORT INFORMATION
  Report Type: Spontaneous
  Country: US (occurrence: US)
  Receive Date: 20130920
  Receipt Date: 20130920
  Transmission Date: 20140515
  Serious: Yes (Other)
  Sender: FDA-Public Use
  Company Number: US-NAPPMUNDI-USA-2011-0074805

PATIENT
  Sex: Male

DRUGS (4)
  1. BUTRANS [Suspect]
     Indication: PAIN
     Dosage: 20 MCG, UNK
     Route: 062
     Dates: start: 201107
  2. BUTRANS [Suspect]
     Dosage: 20 MCG, Q1H
     Route: 062
  3. BUTRANS [Suspect]
     Dosage: UNK
     Dates: start: 20110711
  4. WELLBUTRIN [Suspect]
     Indication: DEPRESSION
     Dosage: 150 MG, BID
     Route: 048

REACTIONS (3)
  - Hallucination [Unknown]
  - Inadequate analgesia [Unknown]
  - Pain [Unknown]
